FAERS Safety Report 11966221 (Version 3)
Quarter: 2016Q1

REPORT INFORMATION
  Report Type: Report from Study
  Country: KR (occurrence: KR)
  Receive Date: 20160127
  Receipt Date: 20160322
  Transmission Date: 20160526
  Serious: Yes (Death, Life-Threatening, Hospitalization)
  Sender: FDA-Public Use
  Company Number: KR-CELGENE-KOR-2016012987

PATIENT
  Age: 58 Year
  Sex: Female
  Weight: 51.7 kg

DRUGS (9)
  1. CARDURA-XL [Concomitant]
     Indication: HYPERTENSION
     Route: 048
     Dates: start: 20120115
  2. AZACITIDINE INJECTABLE [Suspect]
     Active Substance: AZACITIDINE
     Indication: MYELODYSPLASTIC SYNDROME
     Route: 058
     Dates: start: 20120117
  3. CETIZAL [Concomitant]
     Indication: ANTIALLERGIC THERAPY
     Route: 048
     Dates: start: 20120116
  4. AZACITIDINE INJECTABLE [Suspect]
     Active Substance: AZACITIDINE
     Route: 058
     Dates: start: 20120227, end: 20120304
  5. BUP-4 [Concomitant]
     Active Substance: PROPIVERINE
     Indication: ANTITUSSIVE THERAPY
     Route: 048
     Dates: start: 20120115
  6. ENTELON [Concomitant]
     Indication: VASOCONSTRICTION
     Route: 048
     Dates: start: 20120116
  7. ENTELON [Concomitant]
     Route: 048
     Dates: start: 20120130, end: 20120131
  8. AZACITIDINE INJECTABLE [Suspect]
     Active Substance: AZACITIDINE
     Route: 058
     Dates: start: 20120327, end: 20120402
  9. GLIATILIN [Concomitant]
     Active Substance: CHOLINE ALFOSCERATE
     Indication: COGNITIVE DISORDER
     Dosage: 10 MILLIGRAM
     Route: 048
     Dates: start: 20120116

REACTIONS (4)
  - Pneumonia [Fatal]
  - Septic shock [Fatal]
  - Azotaemia [Not Recovered/Not Resolved]
  - Pneumonia [Recovered/Resolved]

NARRATIVE: CASE EVENT DATE: 20120130
